FAERS Safety Report 6308152-3 (Version None)
Quarter: 2009Q3

REPORT INFORMATION
  Report Type: 
  Country: None (occurrence: None)
  Receive Date: 20090807
  Receipt Date: 20090730
  Transmission Date: 20100115
  Serious: Yes (Hospitalization)
  Sender: FDA-Public Use
  Company Number: OXER20090009

PATIENT
  Age: 63 Year
  Sex: Female
  Weight: 90.7194 kg

DRUGS (4)
  1. OXYCODONE HCL [Suspect]
     Indication: BACK PAIN
     Dosage: 20 MG, TWICE DAILY, PER ORAL
     Route: 048
     Dates: start: 20050801, end: 20060714
  2. WELLBUTRIN [Concomitant]
  3. PAXIL [Concomitant]
  4. SIMVASTATIN [Concomitant]

REACTIONS (3)
  - CONDITION AGGRAVATED [None]
  - DEPRESSION [None]
  - SUICIDAL IDEATION [None]
